FAERS Safety Report 21408427 (Version 1)
Quarter: 2022Q4

REPORT INFORMATION
  Report Type: Spontaneous
  Country: IR (occurrence: IR)
  Receive Date: 20221004
  Receipt Date: 20221004
  Transmission Date: 20230112
  Serious: Yes (Other)
  Sender: FDA-Public Use
  Company Number: IR-JUBILANT CADISTA PHARMACEUTICALS-2022JUB00314

PATIENT
  Age: 53 Year
  Sex: Male

DRUGS (12)
  1. LEVOFLOXACIN [Suspect]
     Active Substance: LEVOFLOXACIN
     Indication: Urinary tract infection
     Dosage: UNK MG
     Dates: start: 2014
  2. LEVOFLOXACIN [Suspect]
     Active Substance: LEVOFLOXACIN
     Indication: Klebsiella infection
     Dosage: 500 MG
  3. CEFEPIME [Suspect]
     Active Substance: CEFEPIME HYDROCHLORIDE
     Indication: Klebsiella infection
  4. CEFEPIME [Suspect]
     Active Substance: CEFEPIME HYDROCHLORIDE
     Indication: Urinary tract infection
  5. CEFTAZIDIME [Suspect]
     Active Substance: CEFTAZIDIME
     Indication: Klebsiella infection
     Dosage: UNK
     Dates: start: 2014
  6. CEFTAZIDIME [Suspect]
     Active Substance: CEFTAZIDIME
     Indication: Urinary tract infection
  7. CEFOTAXIME [Suspect]
     Active Substance: CEFOTAXIME SODIUM
     Indication: Klebsiella infection
     Dosage: 500 MG
  8. CEFOTAXIME [Suspect]
     Active Substance: CEFOTAXIME SODIUM
     Indication: Urinary tract infection
     Dosage: UNK
  9. PREDNISOLONE [Concomitant]
     Active Substance: PREDNISOLONE
     Indication: Colitis
     Dosage: UNK
     Dates: start: 2000
  10. PREDNISOLONE [Concomitant]
     Active Substance: PREDNISOLONE
     Indication: Crohn^s disease
  11. ADALIMUMAB [Concomitant]
     Active Substance: ADALIMUMAB
     Indication: Colitis
     Dosage: UNK
     Dates: start: 2017
  12. ADALIMUMAB [Concomitant]
     Active Substance: ADALIMUMAB
     Indication: Crohn^s disease

REACTIONS (5)
  - Intentional product misuse [Recovered/Resolved]
  - Pathogen resistance [Recovered/Resolved]
  - Treatment failure [Recovered/Resolved]
  - Urinary tract infection [Recovered/Resolved]
  - Klebsiella infection [Recovered/Resolved]
